FAERS Safety Report 6552610-3 (Version None)
Quarter: 2010Q1

REPORT INFORMATION
  Report Type: 
  Country: None (occurrence: None)
  Receive Date: 20100126
  Receipt Date: 20100114
  Transmission Date: 20100710
  Serious: Yes (Other)
  Sender: FDA-Public Use
  Company Number: US-PFIZER INC-2009295479

PATIENT
  Sex: Female
  Weight: 58.967 kg

DRUGS (8)
  1. NEURONTIN [Suspect]
     Indication: TEMPORAL LOBE EPILEPSY
     Dosage: 100 MG, 2X/DAY
     Route: 048
     Dates: start: 20091027, end: 20091028
  2. NEURONTIN [Suspect]
     Dosage: 100 MG, 1X/DAY
     Route: 048
     Dates: start: 20091020
  3. GEODON [Suspect]
     Indication: PARANOIA
     Dosage: 40-60 MG, 1X/DAY
     Route: 048
  4. SEROQUEL [Suspect]
     Dosage: 25 MG, UNK
     Dates: end: 20091109
  5. KLONOPIN [Suspect]
     Dosage: 0.125 MG, UNK
     Dates: start: 20090928, end: 20090928
  6. LEXAPRO [Concomitant]
     Dosage: 5 MG, 1X/DAY
     Route: 048
  7. COUMADIN [Concomitant]
     Indication: HYPERCOAGULATION
     Dosage: 2.5 MG, 1X/DAY
     Route: 048
  8. KLONOPIN [Concomitant]
     Dosage: 0.5 MG ^1/8', AS NEEDED

REACTIONS (6)
  - ANXIETY [None]
  - DEPRESSION [None]
  - ELECTROENCEPHALOGRAM ABNORMAL [None]
  - MOROSE [None]
  - PSYCHOMOTOR HYPERACTIVITY [None]
  - SLEEP DISORDER [None]
